FAERS Safety Report 19625961 (Version 1)
Quarter: 2021Q3

REPORT INFORMATION
  Report Type: Spontaneous
  Country: JP (occurrence: JP)
  Receive Date: 20210729
  Receipt Date: 20210729
  Transmission Date: 20211014
  Serious: Yes (Hospitalization, Other)
  Sender: FDA-Public Use
  Company Number: JP-SAKK-2021SA245777AA

PATIENT
  Age: 71 Year
  Sex: Male

DRUGS (1)
  1. ARAVA [Suspect]
     Active Substance: LEFLUNOMIDE
     Indication: RHEUMATOID ARTHRITIS
     Dosage: 1 MG/DAY
     Route: 048

REACTIONS (10)
  - Chills [Recovering/Resolving]
  - Pain of skin [Recovering/Resolving]
  - Groin abscess [Recovering/Resolving]
  - Dyspnoea [Recovering/Resolving]
  - Necrotising fasciitis [Recovering/Resolving]
  - Fournier^s gangrene [Recovering/Resolving]
  - Swelling [Recovering/Resolving]
  - Malaise [Recovering/Resolving]
  - Groin pain [Recovering/Resolving]
  - Skin swelling [Recovering/Resolving]
